FAERS Safety Report 9132222 (Version 1)
Quarter: 2013Q1

REPORT INFORMATION
  Report Type: Report from Study
  Country: US (occurrence: US)
  Receive Date: 20130301
  Receipt Date: 20130301
  Transmission Date: 20140127
  Serious: Yes (Other)
  Sender: FDA-Public Use
  Company Number: US-PFIZER INC-2013063981

PATIENT
  Age: 56 Year
  Sex: Female

DRUGS (4)
  1. SIROLIMUS [Suspect]
     Indication: STEM CELL TRANSPLANT
     Dosage: UNK
  2. RITUXIMAB [Suspect]
     Indication: STEM CELL TRANSPLANT
  3. BUSULFAN [Concomitant]
  4. FLUDARABINE PHOSPHATE [Concomitant]

REACTIONS (2)
  - Venoocclusive disease [Recovered/Resolved]
  - Cytomegalovirus viraemia [Recovered/Resolved]
